FAERS Safety Report 8918879 (Version 1)
Quarter: 2012Q4

REPORT INFORMATION
  Report Type: Spontaneous
  Country: US (occurrence: None)
  Receive Date: 20121115
  Receipt Date: 20121115
  Transmission Date: 20130627
  Serious: No
  Sender: FDA-Public Use
  Company Number: None

PATIENT
  Age: 45 Year
  Sex: Female
  Weight: 53.52 kg

DRUGS (1)
  1. CYMBALTA [Suspect]
     Indication: MIGRAINE

REACTIONS (15)
  - Hallucination [None]
  - Nausea [None]
  - Tinnitus [None]
  - Abnormal dreams [None]
  - Insomnia [None]
  - Vision blurred [None]
  - Pain [None]
  - Hyperhidrosis [None]
  - Chills [None]
  - Impaired work ability [None]
  - Anxiety [None]
  - Irritability [None]
  - Memory impairment [None]
  - Crying [None]
  - Screaming [None]
